FAERS Safety Report 20857698 (Version 1)
Quarter: 2022Q2

REPORT INFORMATION
  Report Type: Spontaneous
  Country: US (occurrence: US)
  Receive Date: 20220521
  Receipt Date: 20220521
  Transmission Date: 20220721
  Serious: No
  Sender: FDA-Public Use
  Company Number: US-BRISTOL-MYERS SQUIBB COMPANY-2022-035257

PATIENT
  Age: 67 Year
  Sex: Male

DRUGS (1)
  1. REVLIMID [Suspect]
     Active Substance: LENALIDOMIDE
     Indication: Pancytopenia
     Dosage: FREQ: EVERY DAY FOR 21 DAYS THEN 7 DAYS OFF.
     Route: 048
     Dates: start: 20210415

REACTIONS (2)
  - Skin discolouration [Unknown]
  - Intentional product use issue [Unknown]
